FAERS Safety Report 5494140-6 (Version None)
Quarter: 2007Q4

REPORT INFORMATION
  Report Type: 
  Country: None (occurrence: None)
  Receive Date: 20071022
  Receipt Date: 20071012
  Transmission Date: 20080405
  Serious: Yes (Other)
  Sender: FDA-Public Use
  Company Number: SPV1-2007-04522

PATIENT
  Age: 8 Year
  Sex: Male
  Weight: 47.6 kg

DRUGS (2)
  1. DAYTRANA [Suspect]
     Indication: ATTENTION DEFICIT/HYPERACTIVITY DISORDER
     Dosage: 20 MG, 1X/DAY: QD,TRANSDERMAL
     Route: 062
     Dates: start: 20070601, end: 20070929
  2. DAYTRANA [Suspect]
     Indication: ATTENTION DEFICIT/HYPERACTIVITY DISORDER
     Dosage: 20 MG, 1X/DAY: QD,TRANSDERMAL
     Route: 062
     Dates: start: 20071008, end: 20071012

REACTIONS (7)
  - APPLICATION SITE ERYTHEMA [None]
  - APPLICATION SITE EXCORIATION [None]
  - APPLICATION SITE PRURITUS [None]
  - APPLICATION SITE VESICLES [None]
  - INVESTIGATION ABNORMAL [None]
  - RASH GENERALISED [None]
  - SCARLET FEVER [None]
